FAERS Safety Report 5659638-6 (Version None)
Quarter: 2008Q1

REPORT INFORMATION
  Report Type: 
  Country: None (occurrence: None)
  Receive Date: 20080310
  Receipt Date: 20080310
  Transmission Date: 20080703
  Serious: Yes (Other)
  Sender: FDA-Public Use
  Company Number: None

PATIENT
  Age: 54 Year
  Sex: Female
  Weight: 78.4723 kg

DRUGS (1)
  1. PROVIGIL [Suspect]
     Indication: NARCOLEPSY
     Dosage: 200 MG. ONE DAILY PO
     Route: 048
     Dates: start: 20071001, end: 20080210

REACTIONS (7)
  - ANGER [None]
  - ATHETOSIS [None]
  - CHOREA [None]
  - DEPRESSION [None]
  - HYPOAESTHESIA [None]
  - INSOMNIA [None]
  - RASH [None]
